FAERS Safety Report 8846842 (Version 1)
Quarter: 2012Q4

REPORT INFORMATION
  Report Type: Spontaneous
  Country: US (occurrence: None)
  Receive Date: 20121017
  Receipt Date: 20121017
  Transmission Date: 20130627
  Serious: Yes (Other)
  Sender: FDA-Public Use
  Company Number: None

PATIENT
  Age: 63 Year
  Sex: Female

DRUGS (1)
  1. DOCETAXEL [Suspect]
     Indication: DUCTAL BREAST CARCINOMA STAGE I
     Dosage: 75mg/m^2 IV Drip
     Route: 041

REACTIONS (2)
  - Rash [None]
  - Lip swelling [None]
